FAERS Safety Report 7937359-4 (Version None)
Quarter: 2011Q4

REPORT INFORMATION
  Report Type: 
  Country: None (occurrence: None)
  Receive Date: 20111123
  Receipt Date: 20111114
  Transmission Date: 20120403
  Serious: Yes (Hospitalization)
  Sender: FDA-Public Use
  Company Number: BR-ASTRAZENECA-2011SE69691

PATIENT
  Age: 61 Year
  Sex: Female

DRUGS (3)
  1. CRESTOR [Suspect]
     Route: 048
  2. ATACAND HCT [Suspect]
     Dosage: 16/12.5 MG
     Route: 048
  3. CRESTOR [Suspect]
     Route: 048

REACTIONS (1)
  - CARDIAC DISORDER [None]
